FAERS Safety Report 15127155 (Version 1)
Quarter: 2018Q3

REPORT INFORMATION
  Report Type: Spontaneous
  Country: IT (occurrence: IT)
  Receive Date: 20180710
  Receipt Date: 20180710
  Transmission Date: 20181010
  Serious: Yes (Hospitalization)
  Sender: FDA-Public Use
  Company Number: IT-TEVA-2018-IT-921420

PATIENT
  Age: 66 Year
  Sex: Female

DRUGS (3)
  1. ADRONAT 70 MG COMPRESSE [Concomitant]
  2. RYTMONORM [Suspect]
     Active Substance: PROPAFENONE
     Indication: ATRIAL FIBRILLATION
     Dosage: 600 MILLIGRAM DAILY;
     Route: 048
     Dates: start: 20171009, end: 20171009
  3. PRADAXA 150?MG HARD CAPSULES [Concomitant]

REACTIONS (5)
  - Nausea [Unknown]
  - Bradycardia [Unknown]
  - Presyncope [Unknown]
  - Chest pain [Unknown]
  - Malaise [Unknown]

NARRATIVE: CASE EVENT DATE: 20171009
